FAERS Safety Report 12218628 (Version 1)
Quarter: 2016Q1

REPORT INFORMATION
  Report Type: Report from Study
  Country: CA (occurrence: CA)
  Receive Date: 20160329
  Receipt Date: 20160329
  Transmission Date: 20160526
  Serious: Yes (Other)
  Sender: FDA-Public Use
  Company Number: CA-GILEAD-2016-0202818

PATIENT
  Age: 51 Year
  Sex: Male

DRUGS (2)
  1. IBAVYR [Concomitant]
     Active Substance: RIBAVIRIN
     Dosage: UNK
     Dates: start: 20151207
  2. SOFOSBUVIR [Suspect]
     Active Substance: SOFOSBUVIR
     Indication: PRODUCT USED FOR UNKNOWN INDICATION
     Dosage: 400 MG, QD
     Route: 048
     Dates: start: 20151207

REACTIONS (4)
  - Gastrointestinal haemorrhage [Unknown]
  - Haematochezia [Unknown]
  - Infection [Unknown]
  - Gingival bleeding [Unknown]

NARRATIVE: CASE EVENT DATE: 201603
